FAERS Safety Report 17770309 (Version 3)
Quarter: 2020Q3

REPORT INFORMATION
  Report Type: Report from Study
  Country: US (occurrence: US)
  Receive Date: 20200512
  Receipt Date: 20200703
  Transmission Date: 20201102
  Serious: No
  Sender: FDA-Public Use
  Company Number: NVSC2020US126961

PATIENT
  Sex: Female

DRUGS (2)
  1. COSENTYX [Suspect]
     Active Substance: SECUKINUMAB
     Dosage: 300 MG, QW
     Route: 058
     Dates: start: 20200501, end: 20200511
  2. COSENTYX [Suspect]
     Active Substance: SECUKINUMAB
     Indication: PSORIATIC ARTHROPATHY
     Dosage: UNK
     Route: 065

REACTIONS (8)
  - Headache [Unknown]
  - Arthralgia [Unknown]
  - Memory impairment [Unknown]
  - Fatigue [Unknown]
  - Vomiting [Unknown]
  - Feeling abnormal [Unknown]
  - Menstrual disorder [Unknown]
  - Hormone level abnormal [Unknown]
